FAERS Safety Report 4804365-8 (Version None)
Quarter: 2005Q4

REPORT INFORMATION
  Report Type: 
  Country: None (occurrence: None)
  Receive Date: 20051017
  Receipt Date: 20050928
  Transmission Date: 20060501
  Serious: Yes (Hospitalization, Disabling)
  Sender: FDA-Public Use
  Company Number: 2005RR-00822

PATIENT
  Age: 55 Year
  Sex: Male

DRUGS (10)
  1. ASPIRIN [Suspect]
     Dosage: 75 MG, QD
  2. ISOSORBIDE MONONITRATE [Suspect]
     Dosage: 60 MG, QD
  3. ATORVASTATIN CALCIUM [Suspect]
     Dosage: 10 MG, QD
  4. BENDROFLUAZIDE TABLET 5MG BP(BENDROFLUMETHIAZIDE) [Suspect]
     Dosage: 2.5 MG QD
  5. RAMIPRIL [Suspect]
     Dosage: 2.5 MG, QD
  6. AMLODIPINE [Suspect]
     Dosage: SEE IMAGE
  7. PIOGLITAZONE HCL [Suspect]
     Dosage: 15 MG, QD
  8. METFORMIN HCL [Suspect]
     Dosage: 850 MG,TID
  9. METHYLDOPA [Suspect]
     Dosage: 250 MG, TID
  10. HYDRALAZINE HCL [Suspect]
     Dosage: 50 MG, BID

REACTIONS (12)
  - ASTHENIA [None]
  - ATRIAL FIBRILLATION [None]
  - CEREBRAL HAEMATOMA [None]
  - DYSARTHRIA [None]
  - GLUCOSE URINE PRESENT [None]
  - HAEMORRHAGIC STROKE [None]
  - HEMIANOPIA HOMONYMOUS [None]
  - HEMIPARESIS [None]
  - HYPERTENSION [None]
  - PROTEINURIA [None]
  - SOMNOLENCE [None]
  - VENTRICULAR HYPERTROPHY [None]
